FAERS Safety Report 10253380 (Version 1)
Quarter: 2014Q2

REPORT INFORMATION
  Report Type: Spontaneous
  Country: US (occurrence: None)
  Receive Date: 20140619
  Receipt Date: 20140619
  Transmission Date: 20141212
  Serious: Yes (Life-Threatening, Hospitalization, Other)
  Sender: FDA-Public Use
  Company Number: None

PATIENT
  Age: 80 Year
  Sex: Male
  Weight: 58.51 kg

DRUGS (6)
  1. CEFEPIME 2 GM [Suspect]
     Indication: EVIDENCE BASED TREATMENT
     Dosage: 2G Q12 IV
     Route: 042
     Dates: start: 20140510, end: 20140511
  2. EYE DROPS [Concomitant]
  3. NORVASC [Concomitant]
  4. LABETALOL [Concomitant]
  5. LANTUS/INSULIN [Concomitant]
  6. HYDRALIZINE [Concomitant]

REACTIONS (5)
  - Coma [None]
  - Convulsion [None]
  - Brain injury [None]
  - Mental status changes [None]
  - Medication error [None]
